FAERS Safety Report 9991789 (Version 2)
Quarter: 2014Q2

REPORT INFORMATION
  Report Type: Spontaneous
  Country: IT (occurrence: IT)
  Receive Date: 20140310
  Receipt Date: 20140619
  Transmission Date: 20141212
  Serious: Yes (Hospitalization)
  Sender: FDA-Public Use
  Company Number: IT-PFIZER INC-2014066024

PATIENT
  Age: 49 Year
  Sex: Male

DRUGS (3)
  1. SUTENT [Suspect]
     Indication: PANCREATIC CARCINOMA
     Dosage: 37.5 MG, DAILY
     Route: 048
     Dates: start: 20130514, end: 20140120
  2. LISINOPRIL [Concomitant]
     Dosage: 5 MG, UNK
     Route: 048
     Dates: start: 20130723
  3. IPSTYL [Concomitant]
     Dosage: 120 MG, EVERY 28 DAYS
     Route: 030
     Dates: start: 20121120

REACTIONS (3)
  - Infection [Recovering/Resolving]
  - Enterocutaneous fistula [Recovering/Resolving]
  - Abdominal abscess [Recovering/Resolving]
